FAERS Safety Report 7553230-4 (Version None)
Quarter: 2011Q2

REPORT INFORMATION
  Report Type: 
  Country: None (occurrence: None)
  Receive Date: 20110617
  Receipt Date: 20110609
  Transmission Date: 20111010
  Serious: Yes (Hospitalization)
  Sender: FDA-Public Use
  Company Number: US-BIOGENIDEC-2011BI021371

PATIENT
  Age: 49 Year
  Sex: Female

DRUGS (1)
  1. AVONEX [Suspect]
     Indication: MULTIPLE SCLEROSIS
     Route: 030
     Dates: start: 19990501

REACTIONS (7)
  - PARAESTHESIA [None]
  - BURNING SENSATION [None]
  - VISUAL ACUITY REDUCED TRANSIENTLY [None]
  - INTERVERTEBRAL DISC DEGENERATION [None]
  - TINNITUS [None]
  - MUSCLE SPASMS [None]
  - FIBROMYALGIA [None]
